FAERS Safety Report 5216559-0 (Version None)
Quarter: 2007Q1

REPORT INFORMATION
  Report Type: 
  Country: None (occurrence: None)
  Receive Date: 20070118
  Receipt Date: 20070102
  Transmission Date: 20070707
  Serious: Yes (Hospitalization)
  Sender: FDA-Public Use
  Company Number: ENT 2006-0169

PATIENT
  Age: 52 Year
  Sex: Male

DRUGS (4)
  1. COMTESS                                   (ENTACAPONE) [Suspect]
     Indication: PARKINSON'S DISEASE
     Dosage: 1 TABLET, 5X DAILY ORAL
     Route: 048
     Dates: start: 20061122
  2. CO-CARELDOPA [Concomitant]
  3. TEGRETOL [Concomitant]
  4. LIPRINEL CAP [Concomitant]

REACTIONS (2)
  - GENERAL PHYSICAL HEALTH DETERIORATION [None]
  - PNEUMONIA [None]
